FAERS Safety Report 4893562-1 (Version None)
Quarter: 2005Q4

REPORT INFORMATION
  Report Type: 
  Country: None (occurrence: None)
  Receive Date: 20051223
  Receipt Date: 20050914
  Transmission Date: 20060501
  Serious: No
  Sender: FDA-Public Use
  Company Number: 2005PV002161

PATIENT
  Age: 63 Year
  Sex: Male
  Weight: 108.8633 kg

DRUGS (5)
  1. SYMLIN [Suspect]
     Indication: DIABETES MELLITUS NON-INSULIN-DEPENDENT
     Dosage: 120 MCG;QAM;SC ; 90 MCG;QD;SC ; 120 MCG;QPM;SC
     Route: 058
     Dates: start: 20050804
  2. SYMLIN [Suspect]
     Indication: DIABETES MELLITUS NON-INSULIN-DEPENDENT
     Dosage: 120 MCG;QAM;SC ; 90 MCG;QD;SC ; 120 MCG;QPM;SC
     Route: 058
     Dates: start: 20050804
  3. SYMLIN [Suspect]
     Indication: DIABETES MELLITUS NON-INSULIN-DEPENDENT
     Dosage: 120 MCG;QAM;SC ; 90 MCG;QD;SC ; 120 MCG;QPM;SC
     Route: 058
     Dates: start: 20050804
  4. NOVOLOG [Concomitant]
  5. LANTUS [Concomitant]

REACTIONS (1)
  - INJECTION SITE PAIN [None]
